FAERS Safety Report 9755157 (Version 1)
Quarter: 2013Q4

REPORT INFORMATION
  Report Type: Spontaneous
  Country: US (occurrence: US)
  Receive Date: 20131213
  Receipt Date: 20131213
  Transmission Date: 20140711
  Serious: No
  Sender: FDA-Public Use
  Company Number: US-GLAXOSMITHKLINE-A1012808A

PATIENT
  Age: 50 Year
  Sex: Female

DRUGS (2)
  1. WALGREENS NICOTINE TRANSDERMAL SYSTEM PATCH CLEAR, 14MG [Suspect]
     Indication: EX-TOBACCO USER
  2. WALGREENS NICOTINE TRANSDERMAL SYSTEM PATCH CLEAR, 21MG [Suspect]
     Indication: EX-TOBACCO USER

REACTIONS (8)
  - Anger [Not Recovered/Not Resolved]
  - Stress [Not Recovered/Not Resolved]
  - Aggression [Not Recovered/Not Resolved]
  - Drug administration error [Unknown]
  - Abnormal behaviour [Not Recovered/Not Resolved]
  - Drug ineffective [Unknown]
  - Nicotine dependence [Not Recovered/Not Resolved]
  - Muscle twitching [Not Recovered/Not Resolved]
